FAERS Safety Report 25119916 (Version 2)
Quarter: 2025Q1

REPORT INFORMATION
  Report Type: Spontaneous
  Country: FR (occurrence: FR)
  Receive Date: 20250325
  Receipt Date: 20250331
  Transmission Date: 20250408
  Serious: Yes (Hospitalization, Other)
  Sender: MYLAN
  Company Number: FR-SANDOZ-SDZ2025FR013897

PATIENT
  Age: 33 Year
  Sex: Male

DRUGS (3)
  1. PREGABALIN [Suspect]
     Active Substance: PREGABALIN
     Indication: Pain
  2. PREGABALIN [Suspect]
     Active Substance: PREGABALIN
     Dosage: 8400 MILLIGRAM, QD DOSE ESCALATION, REACHING 8,400 MG PER DAY
  3. GABAPENTIN [Suspect]
     Active Substance: GABAPENTIN
     Indication: Product used for unknown indication

REACTIONS (5)
  - Drug use disorder [Unknown]
  - Drug dependence [Unknown]
  - Withdrawal syndrome [Unknown]
  - Drug abuse [Unknown]
  - Anxiety [Unknown]
